FAERS Safety Report 4669008-5 (Version None)
Quarter: 2005Q2

REPORT INFORMATION
  Report Type: 
  Country: None (occurrence: None)
  Receive Date: 20050523
  Receipt Date: 20040402
  Transmission Date: 20051028
  Serious: Yes (Other)
  Sender: FDA-Public Use
  Company Number: PHBS2004IT04616

PATIENT
  Age: 44 Year
  Sex: Female

DRUGS (2)
  1. ZOMETA [Suspect]
     Indication: METASTASES TO BONE
     Dosage: 4 MG, QMO
     Route: 042
     Dates: start: 20020522, end: 20031031
  2. FEMARA [Concomitant]
     Dosage: 1 TAB/D
     Route: 048

REACTIONS (8)
  - BACTERIAL INFECTION [None]
  - METASTASES TO BONE [None]
  - OSTEONECROSIS [None]
  - PAIN IN JAW [None]
  - SOFT TISSUE DISORDER [None]
  - SOFT TISSUE INFLAMMATION [None]
  - TOOTH ABSCESS [None]
  - TOOTH EXTRACTION [None]
